FAERS Safety Report 5850620-2 (Version None)
Quarter: 2008Q3

REPORT INFORMATION
  Report Type: 
  Country: None (occurrence: None)
  Receive Date: 20080820
  Receipt Date: 20080723
  Transmission Date: 20090109
  Serious: Yes (Other)
  Sender: FDA-Public Use
  Company Number: PHHO2008PL09340

PATIENT
  Age: 57 Year

DRUGS (3)
  1. IMATINIB MESYLATE [Suspect]
     Indication: CHRONIC MYELOID LEUKAEMIA
     Dosage: 400 MG, QD
     Route: 048
     Dates: start: 20040501
  2. IMATINIB MESYLATE [Suspect]
     Dosage: 600 MG, QD
     Route: 048
  3. NILOTINIB [Suspect]
     Indication: CHRONIC MYELOID LEUKAEMIA

REACTIONS (6)
  - CHRONIC MYELOID LEUKAEMIA [None]
  - CYTOGENETIC ANALYSIS ABNORMAL [None]
  - DRUG INEFFECTIVE [None]
  - HAEMOGLOBIN ABNORMAL [None]
  - SPLENOMEGALY [None]
  - WHITE BLOOD CELL COUNT INCREASED [None]
